FAERS Safety Report 8451227-3 (Version None)
Quarter: 2012Q2

REPORT INFORMATION
  Report Type: 
  Country: None (occurrence: None)
  Receive Date: 20120620
  Receipt Date: 20120315
  Transmission Date: 20120825
  Serious: No
  Sender: FDA-Public Use
  Company Number: US-VERTEX PHARMACEUTICALS INC.-AE-2012-000756

PATIENT
  Sex: Female
  Weight: 93.978 kg

DRUGS (4)
  1. INCIVEK [Suspect]
     Indication: HEPATITIS C
     Route: 048
     Dates: start: 20111125
  2. PEGASYS [Concomitant]
     Indication: HEPATITIS C
     Route: 058
     Dates: start: 20111125
  3. RIBAVIRIN [Concomitant]
     Indication: HEPATITIS C
     Dates: start: 20111125
  4. RIBAVIRIN [Concomitant]

REACTIONS (9)
  - URTICARIA [None]
  - LYMPHADENOPATHY [None]
  - ODYNOPHAGIA [None]
  - ANAEMIA [None]
  - OROPHARYNGEAL PAIN [None]
  - ANAL PRURITUS [None]
  - LOCAL SWELLING [None]
  - RASH GENERALISED [None]
  - NECK PAIN [None]
